FAERS Safety Report 4353721-3 (Version None)
Quarter: 2004Q2

REPORT INFORMATION
  Report Type: 
  Country: None (occurrence: None)
  Receive Date: 20040430
  Receipt Date: 20040120
  Transmission Date: 20050107
  Serious: No
  Sender: FDA-Public Use
  Company Number: 203770

PATIENT
  Age: 40 Year
  Sex: Female
  Weight: 70 kg

DRUGS (8)
  1. XOLAIR [Suspect]
     Indication: ASTHMA
     Dosage: 150 MG, Q4W, SUBCUTANEOUS
     Route: 058
     Dates: start: 20031202
  2. RHINOCORT [Concomitant]
  3. ADVAIR (SALMETEROL XINAFOATE, FLUITCASONE PROPIONATE) [Concomitant]
  4. EPIPEN (EPINEPHRINE) [Concomitant]
  5. PRILOSEC [Concomitant]
  6. CELEXA [Concomitant]
  7. SINGULAIR [Concomitant]
  8. .. [Concomitant]

REACTIONS (3)
  - DYSPNOEA [None]
  - INFLUENZA LIKE ILLNESS [None]
  - PLEURITIC PAIN [None]
